FAERS Safety Report 6847807-9 (Version None)
Quarter: 2010Q3

REPORT INFORMATION
  Report Type: 
  Country: None (occurrence: None)
  Receive Date: 20100714
  Receipt Date: 20100706
  Transmission Date: 20110219
  Serious: Yes (Hospitalization)
  Sender: FDA-Public Use
  Company Number: RB-11524-2010

PATIENT
  Age: 22 Year
  Sex: Male

DRUGS (1)
  1. SUBOXONE [Suspect]
     Indication: PRODUCT USED FOR UNKNOWN INDICATION

REACTIONS (5)
  - MUSCULAR WEAKNESS [None]
  - PNEUMONIA [None]
  - PULMONARY THROMBOSIS [None]
  - THROMBOSIS [None]
  - WITHDRAWAL SYNDROME [None]
